FAERS Safety Report 5238609-8 (Version None)
Quarter: 2007Q1

REPORT INFORMATION
  Report Type: 
  Country: None (occurrence: None)
  Receive Date: 20070215
  Receipt Date: 20070201
  Transmission Date: 20070707
  Serious: Yes (Hospitalization)
  Sender: FDA-Public Use
  Company Number: US-AMGEN-US207210

PATIENT
  Sex: Female

DRUGS (8)
  1. AMG 706 [Suspect]
     Indication: METASTATIC NEOPLASM
     Route: 048
     Dates: start: 20061227
  2. PANITUMUMAB [Suspect]
     Indication: METASTATIC NEOPLASM
     Route: 042
     Dates: start: 20061227
  3. GEMZAR [Suspect]
     Route: 042
  4. CISPLATIN [Suspect]
     Route: 042
  5. INDERAL [Concomitant]
     Route: 065
  6. DYAZIDE [Concomitant]
     Route: 065
  7. LOVASTATIN [Concomitant]
     Route: 065
  8. ESTROGEN NOS [Concomitant]
     Route: 051

REACTIONS (3)
  - ASTHENIA [None]
  - DEHYDRATION [None]
  - DIARRHOEA [None]
